FAERS Safety Report 16257205 (Version 1)
Quarter: 2019Q2

REPORT INFORMATION
  Report Type: Spontaneous
  Country: CN (occurrence: CN)
  Receive Date: 20190430
  Receipt Date: 20190430
  Transmission Date: 20190711
  Serious: Yes (Hospitalization)
  Sender: FDA-Public Use
  Company Number: CN-PFIZER INC-2019181681

PATIENT
  Sex: Female
  Weight: 45 kg

DRUGS (3)
  1. LAMOTRIGINE. [Concomitant]
     Active Substance: LAMOTRIGINE
     Indication: BIPOLAR DISORDER
  2. SERTRALINE HCL [Suspect]
     Active Substance: SERTRALINE HYDROCHLORIDE
     Indication: BIPOLAR DISORDER
     Dosage: 50 MG, 1X/DAY
     Route: 048
     Dates: start: 20190401, end: 20190413
  3. IGURATIMOD [Suspect]
     Active Substance: IGURATIMOD
     Indication: BIPOLAR DISORDER
     Dosage: 25 MG, 1X/DAY
     Route: 048
     Dates: start: 20190401, end: 20190413

REACTIONS (2)
  - Product use in unapproved indication [Unknown]
  - Drug eruption [Recovering/Resolving]

NARRATIVE: CASE EVENT DATE: 20190409
